FAERS Safety Report 5118396-4 (Version None)
Quarter: 2006Q3

REPORT INFORMATION
  Report Type: 
  Country: None (occurrence: None)
  Receive Date: 20060926
  Receipt Date: 20060912
  Transmission Date: 20061208
  Serious: No
  Sender: FDA-Public Use
  Company Number: JP200607003117

PATIENT
  Sex: Male

DRUGS (2)
  1. HUMATROPE [Suspect]
     Dosage: SUBCUTANEOUS
     Route: 058
     Dates: start: 20060630, end: 20060713
  2. TESTOSTERONE ENANTHATE [Concomitant]

REACTIONS (3)
  - DIZZINESS POSTURAL [None]
  - NAUSEA [None]
  - OEDEMA PERIPHERAL [None]
